FAERS Safety Report 6849808-3 (Version None)
Quarter: 2010Q3

REPORT INFORMATION
  Report Type: 
  Country: None (occurrence: None)
  Receive Date: 20100716
  Receipt Date: 20071204
  Transmission Date: 20110219
  Serious: No
  Sender: FDA-Public Use
  Company Number: US-PFIZER INC-2007084306

PATIENT
  Sex: Female
  Weight: 40.8 kg

DRUGS (5)
  1. CHANTIX [Suspect]
     Indication: SMOKING CESSATION THERAPY
     Route: 048
     Dates: start: 20071004, end: 20071010
  2. CHANTIX [Suspect]
     Indication: NICOTINE DEPENDENCE
  3. TOPROL-XL [Concomitant]
     Indication: CARDIAC DISORDER
  4. LEXAPRO [Concomitant]
     Indication: ANXIETY
  5. TOPROL-XL [Concomitant]

REACTIONS (7)
  - HAEMATOCRIT [None]
  - HAEMOGLOBIN [None]
  - NAUSEA [None]
  - ORAL BACTERIAL INFECTION [None]
  - ORAL CANDIDIASIS [None]
  - STRESS [None]
  - TONGUE DISCOLOURATION [None]
